FAERS Safety Report 5228297-9 (Version None)
Quarter: 2007Q1

REPORT INFORMATION
  Report Type: 
  Country: None (occurrence: None)
  Receive Date: 20070205
  Receipt Date: 20070122
  Transmission Date: 20070707
  Serious: Yes (Death, Hospitalization, Other)
  Sender: FDA-Public Use
  Company Number: US-KINGPHARMUSA00001-K200601349

PATIENT

DRUGS (7)
  1. ALTACE [Suspect]
     Dosage: 10 MG, QD
     Route: 048
  2. COZAAR [Suspect]
     Dosage: 1 U, QD
     Route: 048
  3. DETENSIEL /00802601/ [Suspect]
     Dosage: 10 MG, QD
     Route: 048
  4. RAPAMUNE [Suspect]
     Dosage: 4 MG, QD
     Route: 048
     Dates: end: 20061209
  5. LERCAN [Suspect]
     Dosage: 1 U, QD
     Route: 048
     Dates: end: 20061209
  6. CELLCEPT [Suspect]
     Dosage: 1000 MG, QD
     Route: 048
     Dates: start: 20050716, end: 20061209
  7. LUTERAN [Concomitant]
     Dosage: 1 U, UNK
     Route: 048

REACTIONS (11)
  - CYANOSIS [None]
  - DYSPNOEA [None]
  - ELECTROMECHANICAL DISSOCIATION [None]
  - HYPERTENSION [None]
  - HYPOTENSION [None]
  - HYPOXIA [None]
  - PULMONARY HYPERTENSION [None]
  - RENAL FAILURE [None]
  - RIGHT VENTRICULAR FAILURE [None]
  - SHOCK [None]
  - VENOUS OCCLUSION [None]
